FAERS Safety Report 19760246 (Version 1)
Quarter: 2021Q3

REPORT INFORMATION
  Report Type: Spontaneous
  Country: US (occurrence: US)
  Receive Date: 20210830
  Receipt Date: 20210830
  Transmission Date: 20211014
  Serious: No
  Sender: FDA-Public Use
  Company Number: US-TEVA-2021-US-1945488

PATIENT
  Age: 70 Year
  Sex: Female

DRUGS (7)
  1. RISEDRONIC SODIUM [Suspect]
     Active Substance: RISEDRONATE SODIUM
     Dosage: 150 MILLIGRAM DAILY; 150 MG ONCE A MONTH
     Route: 065
     Dates: start: 202011
  2. RISEDRONIC SODIUM [Suspect]
     Active Substance: RISEDRONATE SODIUM
     Dosage: 150 MILLIGRAM DAILY; 150 MG ONCE A MONTH
     Route: 065
     Dates: start: 202009
  3. RISEDRONIC SODIUM [Suspect]
     Active Substance: RISEDRONATE SODIUM
     Dosage: 150 MILLIGRAM DAILY; 150 MG ONCE A MONTH
     Route: 065
     Dates: start: 202107, end: 202107
  4. RISEDRONIC SODIUM [Suspect]
     Active Substance: RISEDRONATE SODIUM
     Dosage: 150 MILLIGRAM DAILY; 150 MG ONCE A MONTH
     Route: 065
     Dates: start: 202101, end: 202102
  5. RISEDRONIC SODIUM [Suspect]
     Active Substance: RISEDRONATE SODIUM
     Dosage: 150 MILLIGRAM DAILY; 150 MG ONCE A MONTH
     Route: 065
     Dates: start: 202010
  6. RISEDRONIC SODIUM [Suspect]
     Active Substance: RISEDRONATE SODIUM
     Dosage: 150 MILLIGRAM DAILY; 150 MG ONCE A MONTH
     Route: 065
     Dates: start: 202012
  7. RISEDRONIC SODIUM [Suspect]
     Active Substance: RISEDRONATE SODIUM
     Indication: PRODUCT USED FOR UNKNOWN INDICATION
     Dosage: 150 MILLIGRAM DAILY; 150 MG ONCE A MONTH
     Route: 065
     Dates: start: 202002, end: 202003

REACTIONS (2)
  - Dental operation [Unknown]
  - Neck pain [Not Recovered/Not Resolved]

NARRATIVE: CASE EVENT DATE: 2020
